FAERS Safety Report 15119688 (Version 1)
Quarter: 2018Q3

REPORT INFORMATION
  Report Type: Spontaneous
  Country: JP (occurrence: JP)
  Receive Date: 20180709
  Receipt Date: 20180709
  Transmission Date: 20181010
  Serious: Yes (Death)
  Sender: FDA-Public Use
  Company Number: JP-ELI_LILLY_AND_COMPANY-JP201807002868

PATIENT
  Age: 85 Year
  Sex: Female

DRUGS (10)
  1. TRULICITY [Suspect]
     Active Substance: DULAGLUTIDE
     Indication: DIABETES MELLITUS
  2. PREDNISOLONE. [Concomitant]
     Active Substance: PREDNISOLONE
  3. RHEUMATREX [Concomitant]
     Active Substance: METHOTREXATE SODIUM
  4. TRAZENTA [Concomitant]
     Active Substance: LINAGLIPTIN
  5. GLUFAST [Concomitant]
     Active Substance: MITIGLINIDE
  6. REBAMIPIDE [Concomitant]
     Active Substance: REBAMIPIDE
  7. FOLIAMIN [Concomitant]
     Active Substance: FOLIC ACID
  8. OLMESARTAN                         /01635402/ [Concomitant]
     Active Substance: OLMESARTAN MEDOXOMIL
  9. INSULIN [Concomitant]
     Active Substance: INSULIN NOS
     Indication: BLOOD GLUCOSE INCREASED
  10. SODIUM FERRIC CITRATE [Concomitant]
     Active Substance: FERRIC SODIUM CITRATE

REACTIONS (1)
  - Pneumonia [Fatal]
